FAERS Safety Report 9496769 (Version 1)
Quarter: 2013Q3

REPORT INFORMATION
  Report Type: Spontaneous
  Country: US (occurrence: US)
  Receive Date: 20130904
  Receipt Date: 20130904
  Transmission Date: 20140515
  Serious: Yes (Other)
  Sender: FDA-Public Use
  Company Number: US-PFIZER INC-2013253516

PATIENT
  Age: 57 Year
  Sex: Female
  Weight: 37.19 kg

DRUGS (11)
  1. ATIVAN [Suspect]
     Indication: ANXIETY
     Dosage: 2 MG, 2X/DAY
  2. ZOLOFT [Suspect]
     Indication: DEPRESSION
     Dosage: UNK
     Dates: start: 2008, end: 201308
  3. IMODIUM [Concomitant]
     Dosage: 02 MG, AS NEEDED
  4. LOMOTIL [Concomitant]
     Dosage: 2.5 MG, AS NEEDED
  5. TYLENOL W/CODEINE NO. 3 [Concomitant]
     Dosage: UNK
  6. OXYCONTIN [Concomitant]
     Dosage: 40 MG, 2X/DAY
  7. PROAMATINE [Concomitant]
     Indication: BLOOD DISORDER
     Dosage: 10 MG, UNK
  8. PROAMATINE [Concomitant]
     Indication: CARDIAC DISORDER
  9. PROTONIX [Concomitant]
     Indication: ABDOMINAL DISCOMFORT
     Dosage: UNK
  10. FLORINEF [Concomitant]
     Indication: CARDIAC DISORDER
     Dosage: UNK
  11. PHENERGAN [Concomitant]
     Indication: VOMITING
     Dosage: UNK

REACTIONS (8)
  - Circulatory collapse [Unknown]
  - Feeling abnormal [Unknown]
  - Hostility [Unknown]
  - Aggression [Unknown]
  - Narcolepsy [Unknown]
  - Deep vein thrombosis [Unknown]
  - Syncope [Unknown]
  - Drug ineffective [Unknown]
